FAERS Safety Report 25871267 (Version 1)
Quarter: 2025Q4

REPORT INFORMATION
  Report Type: Spontaneous
  Country: US (occurrence: US)
  Receive Date: 20251001
  Receipt Date: 20251001
  Transmission Date: 20260118
  Serious: No
  Sender: RECKITT BENCKISER
  Company Number: US-Indivior Limited-INDV-160023-2025

PATIENT
  Sex: Female

DRUGS (3)
  1. SUBLOCADE [Suspect]
     Active Substance: BUPRENORPHINE
     Indication: Drug dependence
     Dosage: 300 MILLIGRAM, QMO
     Route: 065
  2. SUBLOCADE [Suspect]
     Active Substance: BUPRENORPHINE
  3. SUBUTEX [Suspect]
     Active Substance: BUPRENORPHINE HYDROCHLORIDE
     Indication: Drug dependence
     Dosage: 6 MILLIGRAM, QD
     Route: 065

REACTIONS (2)
  - Sedation complication [Not Recovered/Not Resolved]
  - Mental status changes [Recovering/Resolving]
